FAERS Safety Report 15657751 (Version 6)
Quarter: 2020Q4

REPORT INFORMATION
  Report Type: Spontaneous
  Country: US (occurrence: US)
  Receive Date: 20181126
  Receipt Date: 20201215
  Transmission Date: 20210113
  Serious: No
  Sender: FDA-Public Use
  Company Number: US-PFIZER INC-2017165634

PATIENT
  Age: 57 Year
  Sex: Female
  Weight: 91 kg

DRUGS (4)
  1. GENOTROPIN MQ [Suspect]
     Active Substance: SOMATROPIN
     Dosage: 0.6 MG, DAILY
  2. GENOTROPIN MQ [Suspect]
     Active Substance: SOMATROPIN
     Dosage: 0.4 MG, UNK
     Dates: start: 201704, end: 201704
  3. GENOTROPIN MQ [Suspect]
     Active Substance: SOMATROPIN
     Indication: HYPOPITUITARISM
     Dosage: 0.6 MG, DAILY
     Dates: start: 20170328
  4. GENOTROPIN MQ [Suspect]
     Active Substance: SOMATROPIN
     Dosage: UNK, ALTERNATE DAY

REACTIONS (5)
  - Cystitis [Unknown]
  - Tooth disorder [Unknown]
  - Intentional product misuse [Unknown]
  - Blood growth hormone decreased [Unknown]
  - Product prescribing error [Unknown]
